FAERS Safety Report 13984572 (Version 1)
Quarter: 2017Q3

REPORT INFORMATION
  Report Type: Spontaneous
  Country: US (occurrence: US)
  Receive Date: 20170918
  Receipt Date: 20170918
  Transmission Date: 20171128
  Serious: Yes (Death, Hospitalization)
  Sender: FDA-Public Use
  Company Number: PHHY2017US136583

PATIENT
  Age: 27 Year
  Sex: Male

DRUGS (1)
  1. PACLITAXEL. [Suspect]
     Active Substance: PACLITAXEL
     Indication: REFRACTORY CANCER
     Dosage: UNK
     Route: 065
     Dates: start: 201604

REACTIONS (1)
  - Febrile neutropenia [Fatal]
